FAERS Safety Report 7762107-0 (Version None)
Quarter: 2011Q3

REPORT INFORMATION
  Report Type: 
  Country: None (occurrence: None)
  Receive Date: 20110920
  Receipt Date: 20110913
  Transmission Date: 20111222
  Serious: Yes (Other)
  Sender: FDA-Public Use
  Company Number: BR-PFIZER INC-2009235226

PATIENT
  Age: 64 Year
  Sex: Female

DRUGS (2)
  1. XALATAN [Suspect]
     Indication: OCULAR HYPERTENSION
     Dosage: ONE DROP IN EACH EYE (3 UG), 1X/DAY
     Route: 047
     Dates: start: 20010101
  2. XALATAN [Suspect]
     Indication: GLAUCOMA

REACTIONS (9)
  - HYPOTHYROIDISM [None]
  - OCULAR HYPERAEMIA [None]
  - BLOOD CHOLESTEROL INCREASED [None]
  - BLOOD PRESSURE INCREASED [None]
  - CHEST PAIN [None]
  - FOREIGN BODY SENSATION IN EYES [None]
  - DARK CIRCLES UNDER EYES [None]
  - FLUID RETENTION [None]
  - EYE IRRITATION [None]
